FAERS Safety Report 21402367 (Version 1)
Quarter: 2022Q4

REPORT INFORMATION
  Report Type: Report from Study
  Country: CA (occurrence: CA)
  Receive Date: 20221003
  Receipt Date: 20221003
  Transmission Date: 20230113
  Serious: Yes (Other)
  Sender: FDA-Public Use
  Company Number: CA-NOVARTISPH-NVSC2022CA220797

PATIENT
  Sex: Male

DRUGS (1)
  1. PIRFENIDONE [Suspect]
     Active Substance: PIRFENIDONE
     Indication: Rheumatoid arthritis-associated interstitial lung disease
     Dosage: UNK
     Route: 065

REACTIONS (9)
  - Bronchiectasis [Unknown]
  - Pulmonary artery dilatation [Unknown]
  - Rheumatoid arthritis-associated interstitial lung disease [Not Recovered/Not Resolved]
  - Pleural disorder [Unknown]
  - Ligament sprain [Unknown]
  - Cystic lung disease [Unknown]
  - Dyspnoea [Unknown]
  - Gait disturbance [Unknown]
  - Disease progression [Not Recovered/Not Resolved]
